FAERS Safety Report 6706920-7 (Version None)
Quarter: 2010Q2

REPORT INFORMATION
  Report Type: 
  Country: None (occurrence: None)
  Receive Date: 20100430
  Receipt Date: 20100430
  Transmission Date: 20101027
  Serious: Yes (Hospitalization)
  Sender: FDA-Public Use
  Company Number: None

PATIENT
  Sex: Female
  Weight: 77.1 kg

DRUGS (11)
  1. SORAFENIB 200MG BAYER/ONYX [Suspect]
     Indication: BREAST CANCER METASTATIC
     Dosage: 2 TABLETS TWICE DAILY PO
     Route: 048
     Dates: start: 20100501, end: 20100501
  2. TAXOL [Concomitant]
  3. ABUTEROL [Concomitant]
  4. HYDROMORPHONE HCL [Concomitant]
  5. FERROUS SULFATE TAB [Concomitant]
  6. LOPERAMIDE [Concomitant]
  7. OSCITALOPRAM [Concomitant]
  8. IBUPROFEN [Concomitant]
  9. PMDAMSETRON [Concomitant]
  10. ZOLPIDEM PRN [Concomitant]
  11. ALPRAZOLAM PR [Concomitant]

REACTIONS (2)
  - CHEST PAIN [None]
  - FALL [None]
